FAERS Safety Report 6420845-6 (Version None)
Quarter: 2009Q4

REPORT INFORMATION
  Report Type: 
  Country: None (occurrence: None)
  Receive Date: 20091030
  Receipt Date: 20091019
  Transmission Date: 20100525
  Serious: Yes (Other)
  Sender: FDA-Public Use
  Company Number: US-WYE-H11721909

PATIENT
  Sex: Female

DRUGS (2)
  1. EFFEXOR XR [Suspect]
     Dosage: UNKNOWN
  2. CHANTIX [Suspect]
     Dosage: 0.5 MG, FREQUENCY NOT SPECIFIED

REACTIONS (2)
  - DIZZINESS [None]
  - SPINAL FUSION SURGERY [None]
